FAERS Safety Report 13133173 (Version 1)
Quarter: 2017Q1

REPORT INFORMATION
  Report Type: Spontaneous
  Country: US (occurrence: US)
  Receive Date: 20170118
  Receipt Date: 20170118
  Transmission Date: 20170428
  Serious: Yes (Hospitalization, Other)
  Sender: FDA-Public Use
  Company Number: None

PATIENT
  Age: 50 Year
  Sex: Female

DRUGS (11)
  1. REVATIO [Concomitant]
     Active Substance: SILDENAFIL CITRATE
  2. ASPIRIN. [Concomitant]
     Active Substance: ASPIRIN
  3. DIGOXIN. [Concomitant]
     Active Substance: DIGOXIN
  4. OMEPRAZOLE SR [Concomitant]
  5. OPSUMIT [Suspect]
     Active Substance: MACITENTAN
     Indication: PULMONARY ARTERIAL HYPERTENSION
     Route: 048
     Dates: start: 201511, end: 201612
  6. BUMEX [Concomitant]
     Active Substance: BUMETANIDE
  7. SPIRONOLACTONE. [Concomitant]
     Active Substance: SPIRONOLACTONE
  8. LIDODERM [Concomitant]
     Active Substance: LIDOCAINE
  9. REMODULIN [Concomitant]
     Active Substance: TREPROSTINIL
  10. K-TAB [Concomitant]
     Active Substance: POTASSIUM CHLORIDE
  11. PERCOCET [Concomitant]
     Active Substance: ACETAMINOPHEN\OXYCODONE HYDROCHLORIDE

REACTIONS (7)
  - Cardiac failure [None]
  - Pleural effusion [None]
  - Dyspnoea [None]
  - Hypotension [None]
  - Sepsis [None]
  - Oedema [None]
  - Oedema peripheral [None]

NARRATIVE: CASE EVENT DATE: 20161219
